FAERS Safety Report 13411540 (Version 1)
Quarter: 2017Q2

REPORT INFORMATION
  Report Type: Other
  Country: GB (occurrence: GB)
  Receive Date: 20170406
  Receipt Date: 20170406
  Transmission Date: 20170830
  Serious: Yes (Hospitalization)
  Sender: FDA-Public Use
  Company Number: GB-PERRIGO-17GB002839

PATIENT

DRUGS (1)
  1. IBUPROFEN. [Suspect]
     Active Substance: IBUPROFEN
     Indication: DISCOMFORT
     Dosage: 5 ML, UNK
     Route: 048
     Dates: start: 20170225, end: 20170228

REACTIONS (5)
  - Product taste abnormal [Unknown]
  - Burning sensation [Unknown]
  - Dyspnoea [Unknown]
  - Stridor [Unknown]
  - Laryngeal ventricle prolapse [Recovering/Resolving]

NARRATIVE: CASE EVENT DATE: 20170226
